FAERS Safety Report 9122352 (Version 1)
Quarter: 2013Q1

REPORT INFORMATION
  Report Type: Spontaneous
  Country: AU (occurrence: AU)
  Receive Date: 20130227
  Receipt Date: 20130227
  Transmission Date: 20140127
  Serious: Yes (Other)
  Sender: FDA-Public Use
  Company Number: PHHY2013AU017287

PATIENT
  Sex: Male

DRUGS (5)
  1. GLIVEC [Suspect]
     Indication: CHRONIC MYELOID LEUKAEMIA
     Dosage: 800 MG, DAILY
     Route: 048
     Dates: start: 20061201
  2. GLIVEC [Suspect]
     Dosage: 600 MG, DAILY
     Route: 048
  3. GLIVEC [Suspect]
     Dosage: 400 MG, DAILY
     Route: 048
  4. ALLOPURINOL [Concomitant]
     Indication: RENAL DISORDER
  5. MICARDIS PLUS [Concomitant]

REACTIONS (6)
  - Bile duct obstruction [Not Recovered/Not Resolved]
  - Biliary colic [Not Recovered/Not Resolved]
  - Fluid retention [Not Recovered/Not Resolved]
  - Muscle spasms [Not Recovered/Not Resolved]
  - Diarrhoea [Recovering/Resolving]
  - Arthralgia [Not Recovered/Not Resolved]
